FAERS Safety Report 10794267 (Version 3)
Quarter: 2015Q1

REPORT INFORMATION
  Report Type: Spontaneous
  Country: US (occurrence: US)
  Receive Date: 20150213
  Receipt Date: 20150318
  Transmission Date: 20150721
  Serious: Yes (Other)
  Sender: FDA-Public Use
  Company Number: US-UNITED THERAPEUTICS-UNT-2015-001099

PATIENT
  Age: 56 Year
  Sex: Male
  Weight: 107.3 kg

DRUGS (4)
  1. TYVASO [Suspect]
     Active Substance: TREPROSTINIL
     Dosage: 18-54 MICROGRAMS, QID
     Dates: start: 20150126
  2. OPSUMIT [Concomitant]
     Active Substance: MACITENTAN
     Indication: PRODUCT USED FOR UNKNOWN INDICATION
  3. TYVASO [Suspect]
     Active Substance: TREPROSTINIL
     Indication: PULMONARY HYPERTENSION
     Dosage: 18-54 MICROGRAMS, QID
     Dates: start: 20150126
  4. REVATIO [Concomitant]
     Active Substance: SILDENAFIL CITRATE
     Indication: PRODUCT USED FOR UNKNOWN INDICATION

REACTIONS (8)
  - Cough [Not Recovered/Not Resolved]
  - Choking sensation [Recovering/Resolving]
  - Weight increased [Unknown]
  - Headache [Unknown]
  - Diarrhoea [Unknown]
  - Bronchitis [Unknown]
  - Influenza [Unknown]
  - Dizziness [Unknown]

NARRATIVE: CASE EVENT DATE: 201501
